FAERS Safety Report 6811371-0 (Version None)
Quarter: 2010Q2

REPORT INFORMATION
  Report Type: 
  Country: None (occurrence: None)
  Receive Date: 20100629
  Receipt Date: 20100629
  Transmission Date: 20101027
  Serious: Yes (Other)
  Sender: FDA-Public Use
  Company Number: None

PATIENT
  Age: 59 Year
  Sex: Female
  Weight: 65.7716 kg

DRUGS (1)
  1. FRAGMIN [Suspect]
     Indication: PULMONARY THROMBOSIS
     Dosage: 7500 X 2 DAILY SHOT
     Dates: start: 20100609, end: 20100618

REACTIONS (3)
  - DIZZINESS [None]
  - MUSCULAR WEAKNESS [None]
  - VOMITING [None]
